FAERS Safety Report 20735373 (Version 7)
Quarter: 2022Q4

REPORT INFORMATION
  Report Type: Spontaneous
  Country: JP (occurrence: JP)
  Receive Date: 20220421
  Receipt Date: 20221013
  Transmission Date: 20230112
  Serious: Yes (Hospitalization, Disabling, Other)
  Sender: FDA-Public Use
  Company Number: JP-002147023-NVSJ2022JP088957

PATIENT
  Age: 2 Month
  Sex: Male

DRUGS (1)
  1. LUCENTIS [Suspect]
     Active Substance: RANIBIZUMAB
     Indication: Retinopathy of prematurity
     Route: 050
     Dates: start: 20220408, end: 20220408

REACTIONS (6)
  - Bacterial endophthalmitis [Not Recovered/Not Resolved]
  - Atrophy of globe [Not Recovered/Not Resolved]
  - Vitreous opacities [Not Recovered/Not Resolved]
  - Retinal disorder [Not Recovered/Not Resolved]
  - Optic atrophy [Not Recovered/Not Resolved]
  - Blindness unilateral [Not Recovered/Not Resolved]

NARRATIVE: CASE EVENT DATE: 20220411
